FAERS Safety Report 10637521 (Version 1)
Quarter: 2014Q4

REPORT INFORMATION
  Report Type: Spontaneous
  Country: US (occurrence: US)
  Receive Date: 20141208
  Receipt Date: 20141208
  Transmission Date: 20150529
  Serious: Yes (Other)
  Sender: FDA-Public Use
  Company Number: US-GLENMARK GENERICS INC.-2014GMK012428

PATIENT
  Age: 44 Year
  Sex: Female

DRUGS (1)
  1. MUPIROCIN. [Suspect]
     Active Substance: MUPIROCIN
     Indication: BLISTER
     Dosage: UNK
     Dates: start: 201404

REACTIONS (5)
  - Arthralgia [Recovering/Resolving]
  - Product use issue [Unknown]
  - Pyrexia [Recovering/Resolving]
  - Serum sickness [Recovering/Resolving]
  - Urticaria [Recovering/Resolving]

NARRATIVE: CASE EVENT DATE: 2014
